FAERS Safety Report 4871767-3 (Version None)
Quarter: 2005Q4

REPORT INFORMATION
  Report Type: 
  Country: None (occurrence: None)
  Receive Date: 20051230
  Receipt Date: 20051220
  Transmission Date: 20060501
  Serious: Yes (Hospitalization)
  Sender: FDA-Public Use
  Company Number: US-2005-023086

PATIENT
  Age: 36 Year
  Sex: Female
  Weight: 63 kg

DRUGS (7)
  1. BETASERON [Suspect]
     Indication: RELAPSING-REMITTING MULTIPLE SCLEROSIS
     Dosage: 8 MIU, EVERY 2D, SUBCUTANEOUS
     Route: 058
     Dates: start: 20040701
  2. NOVANTRONE [Suspect]
     Indication: MULTIPLE SCLEROSIS
     Dates: start: 20040801
  3. NEUPOGEN [Suspect]
  4. GABAPENTIN [Concomitant]
  5. ALLEGRA [Concomitant]
  6. CALCIUM WITH VITAMIN D (CALCIUM PHOSPHATE, CALCIUM SODIUM LACTATE) [Concomitant]
  7. ENTERIC ASPIRIN (ACETYLSALICYLIC ACID) [Concomitant]

REACTIONS (8)
  - ANAEMIA [None]
  - CELLULITIS [None]
  - CONDITION AGGRAVATED [None]
  - CYSTITIS [None]
  - DIARRHOEA [None]
  - MULTIPLE SCLEROSIS [None]
  - NEUTROPENIA [None]
  - PROPIONIBACTERIUM INFECTION [None]
